FAERS Safety Report 7636553-X (Version None)
Quarter: 2011Q3

REPORT INFORMATION
  Report Type: 
  Country: None (occurrence: None)
  Receive Date: 20110719
  Receipt Date: 20110705
  Transmission Date: 20111222
  Serious: Yes (Hospitalization, Other)
  Sender: FDA-Public Use
  Company Number: JHP201100274

PATIENT
  Age: 26 Year
  Sex: Male

DRUGS (1)
  1. KETALAR [Suspect]
     Indication: DRUG ABUSE

REACTIONS (3)
  - CYSTITIS [None]
  - HYDRONEPHROSIS [None]
  - GALLBLADDER DISORDER [None]
